FAERS Safety Report 9017040 (Version 1)
Quarter: 2013Q1

REPORT INFORMATION
  Report Type: Report from Study
  Country: PL (occurrence: PL)
  Receive Date: 20130117
  Receipt Date: 20130117
  Transmission Date: 20140127
  Serious: No
  Sender: FDA-Public Use
  Company Number: PHHY2013PL003194

PATIENT
  Sex: 0

DRUGS (5)
  1. AMN107 [Suspect]
     Dosage: UNK
  2. FUROSEMID ^DAK^ [Concomitant]
  3. SPIRONOL [Concomitant]
  4. KALIPOZ-PROLONGATUM [Concomitant]
  5. OPACORDEN [Concomitant]

REACTIONS (1)
  - Anaemia [Recovered/Resolved]
